FAERS Safety Report 24795067 (Version 3)
Quarter: 2025Q1

REPORT INFORMATION
  Report Type: Report from Study
  Country: US (occurrence: US)
  Receive Date: 20241231
  Receipt Date: 20250107
  Transmission Date: 20250408
  Serious: Yes (Other)
  Sender: MYLAN
  Company Number: US-MYLANLABS-2024M1106459

PATIENT
  Sex: Female
  Weight: 86.18 kg

DRUGS (4)
  1. GLATIRAMER ACETATE [Suspect]
     Active Substance: GLATIRAMER ACETATE
     Indication: Multiple sclerosis
     Dosage: 40 MILLIGRAM, 3XW (3 TIMES A WEEK)
     Route: 058
  2. BACLOFEN [Concomitant]
     Active Substance: BACLOFEN
     Route: 065
  3. AMITRIPTYLINE [Concomitant]
     Active Substance: AMITRIPTYLINE
     Route: 065
  4. LEVOTHYROXINE [Concomitant]
     Active Substance: LEVOTHYROXINE
     Indication: Thyroid disorder
     Route: 065

REACTIONS (11)
  - Multiple sclerosis relapse [Unknown]
  - Stress [Unknown]
  - Abdominal discomfort [Unknown]
  - Weight decreased [Unknown]
  - Temperature regulation disorder [Unknown]
  - Injection site erythema [Unknown]
  - Injection site bruising [Unknown]
  - Injection site pain [Unknown]
  - Rash pruritic [Unknown]
  - Hypersensitivity [Unknown]
  - Drug ineffective [Unknown]
